FAERS Safety Report 16358276 (Version 1)
Quarter: 2019Q2

REPORT INFORMATION
  Report Type: Spontaneous
  Country: US (occurrence: US)
  Receive Date: 20190527
  Receipt Date: 20190527
  Transmission Date: 20190711
  Serious: Yes (Other)
  Sender: FDA-Public Use
  Company Number: US-IMPAX LABORATORIES, LLC-2019-IPXL-01040

PATIENT
  Age: 14 Year
  Sex: Male

DRUGS (2)
  1. BUPROPION HYDROCHLORIDE SR [Suspect]
     Active Substance: BUPROPION HYDROCHLORIDE
     Indication: DEPRESSION
     Dosage: UNK
     Route: 048
  2. FENTANYL. [Suspect]
     Active Substance: FENTANYL
     Indication: STATUS EPILEPTICUS
     Dosage: 50 MICROGRAM, EVERY HOUR
     Route: 065

REACTIONS (3)
  - Status epilepticus [Recovered/Resolved]
  - Serotonin syndrome [Recovered/Resolved]
  - Overdose [Unknown]
